FAERS Safety Report 18750710 (Version 1)
Quarter: 2021Q1

REPORT INFORMATION
  Report Type: Spontaneous
  Country: IT (occurrence: IT)
  Receive Date: 20210118
  Receipt Date: 20210118
  Transmission Date: 20210419
  Serious: Yes (Other)
  Sender: FDA-Public Use
  Company Number: IT-DRREDDYS-GER/ITL/21/0130814

PATIENT
  Age: 28 Year
  Sex: Male

DRUGS (3)
  1. ZINFORO 600 MG POWDER FOR CONCENTRATE FOR SOLUTION FOR INFUSION [Suspect]
     Active Substance: CEFTAROLINE FOSAMIL
     Indication: BACTERIAL INFECTION
     Route: 042
     Dates: start: 20201023, end: 20201207
  2. DAPTOMICINA DR. REDDY^S POLVERE PER SOLUZIONE INIETTABILE O PER INFUSI [Suspect]
     Active Substance: DAPTOMYCIN
     Indication: ENDOCARDITIS
     Route: 042
     Dates: start: 20201023, end: 20201130
  3. MEROPENEM AUROBINDO 1 G POLVERE PER SOLUZIONE INIETTABILE/PER INFUSION [Suspect]
     Active Substance: MEROPENEM
     Indication: BACTERIAL INFECTION
     Route: 042
     Dates: start: 20201104, end: 20201130

REACTIONS (1)
  - Leukopenia [Recovering/Resolving]

NARRATIVE: CASE EVENT DATE: 20201130
